FAERS Safety Report 6873001-1 (Version None)
Quarter: 2010Q3

REPORT INFORMATION
  Report Type: 
  Country: None (occurrence: None)
  Receive Date: 20100723
  Receipt Date: 20081118
  Transmission Date: 20110219
  Serious: No
  Sender: FDA-Public Use
  Company Number: US-PFIZER INC-2008098605

PATIENT
  Age: 64 Year
  Sex: Female
  Weight: 47.7 kg

DRUGS (3)
  1. CHANTIX [Suspect]
     Indication: ANXIETY
     Dates: start: 20080101, end: 20080101
  2. CHANTIX [Suspect]
     Indication: OFF LABEL USE
  3. ZIAC [Concomitant]

REACTIONS (3)
  - DRUG INEFFECTIVE FOR UNAPPROVED INDICATION [None]
  - NIGHTMARE [None]
  - OFF LABEL USE [None]
